FAERS Safety Report 13125911 (Version 1)
Quarter: 2017Q1

REPORT INFORMATION
  Report Type: Spontaneous
  Country: GB (occurrence: GB)
  Receive Date: 20170118
  Receipt Date: 20170118
  Transmission Date: 20170428
  Serious: Yes (Hospitalization, Other)
  Sender: FDA-Public Use
  Company Number: GB-JUBILANT PHARMA LTD-2017GB000008

PATIENT
  Age: 26 Year
  Sex: Female

DRUGS (4)
  1. PROPYLTHIOURACIL. [Concomitant]
     Active Substance: PROPYLTHIOURACIL
     Dosage: 300 MG, ONCE PER DAY
     Dates: start: 20110921, end: 201110
  2. SODIUM IODIDE I-131 [Suspect]
     Active Substance: SODIUM IODIDE I-131
     Indication: BASEDOW^S DISEASE
     Dosage: 533 MBQ, SINGLE DOSE
     Dates: start: 20110916, end: 20110916
  3. PREDNISOLONE. [Concomitant]
     Active Substance: PREDNISOLONE
     Indication: ENDOCRINE OPHTHALMOPATHY
     Dosage: UNK
     Route: 048
     Dates: start: 201109, end: 20111007
  4. PROPYLTHIOURACIL. [Concomitant]
     Active Substance: PROPYLTHIOURACIL
     Indication: BASEDOW^S DISEASE
     Dosage: 200 MG, DAILY
     Dates: start: 201110, end: 20111207

REACTIONS (2)
  - Acute psychosis [Recovered/Resolved]
  - Hypothyroidism [Recovered/Resolved]

NARRATIVE: CASE EVENT DATE: 20111207
